FAERS Safety Report 7111784-6 (Version None)
Quarter: 2010Q4

REPORT INFORMATION
  Report Type: 
  Country: None (occurrence: None)
  Receive Date: 20101119
  Receipt Date: 20101115
  Transmission Date: 20110411
  Serious: Yes (Death)
  Sender: FDA-Public Use
  Company Number: US-AMGEN-USACT2010004451

PATIENT
  Sex: Male

DRUGS (14)
  1. DENOSUMAB [Suspect]
     Indication: PROSTATE CANCER
     Dosage: 60 MG, Q6MO
     Route: 058
     Dates: start: 20090709, end: 20100702
  2. LISINOPRIL [Concomitant]
     Dosage: 40 MG, QD
     Route: 048
     Dates: start: 19990614, end: 20101101
  3. HYDROCHLOROTHIAZIDE [Concomitant]
     Dosage: 25 MG, QD
     Route: 048
     Dates: start: 19981214, end: 20101101
  4. ATENOLOL [Concomitant]
     Dosage: 50 MG, QD
     Route: 048
     Dates: start: 20100415, end: 20101101
  5. ASPIRIN [Concomitant]
     Dosage: 325 MG, QD
     Route: 048
     Dates: start: 20000101, end: 20101101
  6. CALCIUM +VIT D [Concomitant]
     Dosage: UNK UNK, BID
     Route: 048
     Dates: start: 20041115, end: 20101101
  7. CASODEX [Concomitant]
     Dosage: 50 MG, QD
     Route: 048
     Dates: start: 20050707, end: 20101101
  8. METAMUCIL                          /00029101/ [Concomitant]
     Dosage: 1 UNK, UNK
     Route: 048
     Dates: start: 20050707, end: 20101101
  9. LOVASTATIN [Concomitant]
     Dosage: 10 MG, QD
     Route: 048
     Dates: start: 20060403, end: 20101101
  10. VANTAS [Concomitant]
     Dosage: 50 MG, Q12MO
     Route: 058
     Dates: start: 20100930, end: 20101101
  11. ALEVE (CAPLET) [Concomitant]
     Dosage: UNK UNK, PRN
     Route: 048
     Dates: start: 20100529, end: 20101101
  12. FENTANYL [Concomitant]
     Dosage: UNK
     Route: 042
     Dates: start: 20100827, end: 20100827
  13. VERSED [Concomitant]
     Dosage: UNK
     Dates: start: 20100827, end: 20100827
  14. LIDOCAINE HYDROCHLORIDE IN PLASTIC CONTAINER [Concomitant]
     Dosage: UNK
     Dates: start: 20100827

REACTIONS (2)
  - METASTASIS [None]
  - SQUAMOUS CELL CARCINOMA [None]
